APPROVED DRUG PRODUCT: NADOLOL AND BENDROFLUMETHIAZIDE
Active Ingredient: BENDROFLUMETHIAZIDE; NADOLOL
Strength: 5MG;80MG
Dosage Form/Route: TABLET;ORAL
Application: A078688 | Product #002
Applicant: NATCO PHARMA LTD
Approved: Feb 15, 2008 | RLD: No | RS: No | Type: DISCN